FAERS Safety Report 24418701 (Version 2)
Quarter: 2024Q4

REPORT INFORMATION
  Report Type: Spontaneous
  Country: US (occurrence: US)
  Receive Date: 20241009
  Receipt Date: 20241014
  Transmission Date: 20250114
  Serious: No
  Sender: ROCHE
  Company Number: US-ROCHE-10000095247

PATIENT
  Age: 53 Year
  Sex: Female

DRUGS (7)
  1. MYCOPHENOLATE MOFETIL [Suspect]
     Active Substance: MYCOPHENOLATE MOFETIL
     Indication: Organising pneumonia
     Route: 065
  2. MYCOPHENOLATE MOFETIL [Suspect]
     Active Substance: MYCOPHENOLATE MOFETIL
     Indication: Metastases to lung
  3. PREDNISONE [Suspect]
     Active Substance: PREDNISONE
     Indication: Pneumonitis
     Dosage: TAPER
     Route: 065
  4. TRABECTEDIN [Concomitant]
     Active Substance: TRABECTEDIN
  5. EPINEPHRINE [Concomitant]
     Active Substance: EPINEPHRINE
     Route: 036
  6. BUDESONIDE [Concomitant]
     Active Substance: BUDESONIDE
     Dosage: NEBULIZER
  7. AZITHROMYCIN [Concomitant]
     Active Substance: AZITHROMYCIN

REACTIONS (1)
  - Tracheobronchitis [Recovering/Resolving]
